FAERS Safety Report 8067502-0 (Version None)
Quarter: 2012Q1

REPORT INFORMATION
  Report Type: 
  Country: None (occurrence: None)
  Receive Date: 20120124
  Receipt Date: 20120116
  Transmission Date: 20120608
  Serious: Yes (Hospitalization)
  Sender: FDA-Public Use
  Company Number: US-ROCHE-1030998

PATIENT
  Sex: Female
  Weight: 68.1 kg

DRUGS (5)
  1. ALBUTEROL [Concomitant]
  2. MAXAIR [Concomitant]
  3. ADVAIR DISKUS 100/50 [Concomitant]
  4. OMALIZUMAB [Suspect]
     Indication: ASTHMA
     Route: 058
     Dates: start: 20111101
  5. AMLODIPINE [Concomitant]

REACTIONS (3)
  - HEART RATE INCREASED [None]
  - BLOOD PRESSURE INCREASED [None]
  - DIZZINESS [None]
